FAERS Safety Report 9652548 (Version 1)
Quarter: 2013Q4

REPORT INFORMATION
  Report Type: Spontaneous
  Country: US (occurrence: US)
  Receive Date: 20131029
  Receipt Date: 20131029
  Transmission Date: 20140711
  Serious: No
  Sender: FDA-Public Use
  Company Number: US-JNJFOC-20131011910

PATIENT
  Sex: Male
  Weight: 63.5 kg

DRUGS (10)
  1. DURAGESIC [Suspect]
     Indication: LUMBAR VERTEBRAL FRACTURE
     Dosage: TWO 100 UG/HR PATCH
     Route: 062
     Dates: start: 2010
  2. DURAGESIC [Suspect]
     Indication: LUMBAR VERTEBRAL FRACTURE
     Route: 062
     Dates: start: 2010, end: 2010
  3. DURAGESIC [Suspect]
     Indication: SCOLIOSIS
     Dosage: TWO 100 UG/HR PATCH
     Route: 062
     Dates: start: 2010
  4. DURAGESIC [Suspect]
     Indication: SCOLIOSIS
     Route: 062
     Dates: start: 2010, end: 2010
  5. DILAUDID [Concomitant]
     Indication: PAIN
     Route: 048
     Dates: start: 2006
  6. WELLBUTRIN [Concomitant]
     Indication: DEPRESSION
     Route: 048
     Dates: start: 2006
  7. ABILIFY [Concomitant]
     Indication: DEPRESSION
     Route: 048
     Dates: start: 2006
  8. TIZANIDINE [Concomitant]
     Indication: MUSCLE SPASMS
     Route: 048
     Dates: start: 2006
  9. LYRICA [Concomitant]
     Indication: PAIN
     Route: 048
     Dates: start: 2006
  10. ADDERALL [Concomitant]
     Indication: ATTENTION DEFICIT/HYPERACTIVITY DISORDER
     Route: 048
     Dates: start: 2006

REACTIONS (12)
  - Therapeutic response decreased [Unknown]
  - Drug dose omission [Unknown]
  - Feeling abnormal [Recovered/Resolved]
  - Lacrimation increased [Recovered/Resolved]
  - Chills [Recovered/Resolved]
  - Back pain [Recovered/Resolved]
  - Aphagia [Recovered/Resolved]
  - Discomfort [Recovered/Resolved]
  - Upper-airway cough syndrome [Recovered/Resolved]
  - Product packaging quantity issue [Unknown]
  - Hypermetabolism [Unknown]
  - Body temperature increased [Unknown]
